FAERS Safety Report 6263262 (Version 4)
Quarter: 2016Q3

REPORT INFORMATION
  Report Type: Report from Study
  Country: JP (occurrence: JP)
  Receive Date: 20070316
  Receipt Date: 20160711
  Transmission Date: 20161109
  Serious: Yes (Hospitalization)
  Sender: FDA-Public Use
  Company Number: JP-NOVOPROD-261737

PATIENT
  Age: 6 Year
  Sex: Male
  Weight: 15 kg

DRUGS (8)
  1. NORDITROPIN NORDIFLEX CHU [Suspect]
     Active Substance: SOMATROPIN
     Dosage: UNK
     Route: 058
  2. BICILLIN                           /00000904/ [Concomitant]
     Dosage: 300 MG, QD
     Route: 048
  3. NORDITROPIN NORDIFLEX CHU [Suspect]
     Active Substance: SOMATROPIN
     Indication: GROWTH HORMONE DEFICIENCY
     Dosage: 2.45 MG, QW
     Route: 058
     Dates: start: 20051216, end: 20060131
  4. ALFACALCIDOL [Concomitant]
     Active Substance: ALFACALCIDOL
     Dosage: .1 UG, QD
     Dates: start: 20051219
  5. RENIVACE [Concomitant]
     Active Substance: ENALAPRIL
     Dosage: 1.2 MG, QD
     Route: 048
  6. LASIX [Concomitant]
     Active Substance: FUROSEMIDE
     Dosage: 12 MG, QD
     Route: 048
  7. WARFARIN POTASSIUM [Concomitant]
     Active Substance: WARFARIN POTASSIUM
     Dosage: .2 MG, QD
     Route: 048
  8. ALDACTONE A [Concomitant]
     Active Substance: SPIRONOLACTONE
     Dosage: 12 MG, QD
     Route: 048

REACTIONS (1)
  - Endocarditis [Recovered/Resolved]

NARRATIVE: CASE EVENT DATE: 20060131
